FAERS Safety Report 5446847-4 (Version None)
Quarter: 2007Q3

REPORT INFORMATION
  Report Type: 
  Country: None (occurrence: None)
  Receive Date: 20070907
  Receipt Date: 20070903
  Transmission Date: 20080115
  Serious: Yes (Other)
  Sender: FDA-Public Use
  Company Number: FR-ABBOTT-07P-056-0376815-00

PATIENT
  Sex: Female
  Weight: 72 kg

DRUGS (2)
  1. ZECLAR [Suspect]
     Indication: TONSILLITIS
     Route: 048
  2. CYPROTERONE ETHINYLESTRADIOL [Concomitant]
     Indication: CONTRACEPTION

REACTIONS (1)
  - INFECTIOUS MONONUCLEOSIS [None]
